FAERS Safety Report 15484759 (Version 1)
Quarter: 2018Q4

REPORT INFORMATION
  Report Type: Spontaneous
  Country: AU (occurrence: AU)
  Receive Date: 20181010
  Receipt Date: 20181010
  Transmission Date: 20190205
  Serious: Yes (Hospitalization)
  Sender: FDA-Public Use
  Company Number: AU-PURACAP PHARMACEUTICAL LLC-2018EPC00426

PATIENT
  Age: 31 Year
  Sex: Male

DRUGS (2)
  1. IBUPROFEN/CODEINE [Suspect]
     Active Substance: CODEINE\IBUPROFEN
     Dosage: PEAK DOSE OF 1.3 G CODEINE DAILY (100 TABLETS/DAY)
     Route: 065
  2. IBUPROFEN/CODEINE [Suspect]
     Active Substance: CODEINE\IBUPROFEN
     Dosage: PEAK DOSE OF 20 G IBUPROFEN DAILY (100 TABLETS/DAY)
     Route: 065

REACTIONS (4)
  - Overdose [Unknown]
  - Nephropathy toxic [Recovering/Resolving]
  - End stage renal disease [Recovering/Resolving]
  - Drug abuse [Unknown]
